FAERS Safety Report 8598896-5 (Version None)
Quarter: 2012Q3

REPORT INFORMATION
  Report Type: 
  Country: None (occurrence: None)
  Receive Date: 20120816
  Receipt Date: 20120727
  Transmission Date: 20120928
  Serious: No
  Sender: FDA-Public Use
  Company Number: US-ASTRAZENECA-2012SE53684

PATIENT
  Age: 76 Year
  Sex: Male
  Weight: 80.7 kg

DRUGS (4)
  1. ALBUTEROL [Concomitant]
     Route: 055
  2. HEART MEDICATION [Concomitant]
  3. SYMBICORT [Suspect]
     Indication: ASTHMA
     Dosage: 2 PUFFS, TWO TIMES A DAY
     Route: 055
  4. FLUTICASONE PROPIONATE [Concomitant]

REACTIONS (5)
  - DYSPNOEA [None]
  - WHEEZING [None]
  - COUGH [None]
  - SPUTUM INCREASED [None]
  - DRUG INEFFECTIVE [None]
